FAERS Safety Report 12519389 (Version 1)
Quarter: 2016Q2

REPORT INFORMATION
  Report Type: Spontaneous
  Country: FR (occurrence: FR)
  Receive Date: 20160630
  Receipt Date: 20160630
  Transmission Date: 20160815
  Serious: Yes (Other)
  Sender: FDA-Public Use
  Company Number: FR-JNJFOC-20160621958

PATIENT
  Age: 65 Year
  Sex: Male

DRUGS (13)
  1. RABEPRAZOLE [Concomitant]
     Active Substance: RABEPRAZOLE
  2. AERIUS [Suspect]
     Active Substance: DESLORATADINE
     Indication: PRODUCT USED FOR UNKNOWN INDICATION
  3. GAMMANORM [Concomitant]
     Active Substance: HUMAN IMMUNOGLOBULIN G
  4. ACTONEL [Concomitant]
     Active Substance: RISEDRONATE SODIUM
  5. SPASFON [Concomitant]
     Active Substance: PHLOROGLUCINOL
  6. COLCHICINE. [Concomitant]
     Active Substance: COLCHICINE
  7. STAGID [Concomitant]
     Active Substance: METFORMIN PAMOATE
  8. VALACICLOVIR [Concomitant]
     Active Substance: VALACYCLOVIR HYDROCHLORIDE
  9. MANIDIPINE [Concomitant]
     Active Substance: MANIDIPINE
  10. BACTRIM [Concomitant]
     Active Substance: SULFAMETHOXAZOLE\TRIMETHOPRIM
  11. IBRUTINIB [Suspect]
     Active Substance: IBRUTINIB
     Indication: CHRONIC LYMPHOCYTIC LEUKAEMIA
     Route: 048
     Dates: start: 20140602
  12. UVEDOSE [Concomitant]
     Active Substance: CHOLECALCIFEROL
  13. JANUVIA [Suspect]
     Active Substance: SITAGLIPTIN PHOSPHATE
     Indication: PRODUCT USED FOR UNKNOWN INDICATION

REACTIONS (1)
  - Interstitial lung disease [Not Recovered/Not Resolved]

NARRATIVE: CASE EVENT DATE: 20160420
